FAERS Safety Report 8475742-1 (Version None)
Quarter: 2012Q2

REPORT INFORMATION
  Report Type: 
  Country: None (occurrence: None)
  Receive Date: 20120628
  Receipt Date: 20120619
  Transmission Date: 20120825
  Serious: Yes (Hospitalization)
  Sender: FDA-Public Use
  Company Number: JP-ASTRAZENECA-2012SE42057

PATIENT
  Age: 72 Year
  Sex: Female

DRUGS (3)
  1. UNKNOWNDRUG [Concomitant]
     Route: 048
  2. NICARDIPINE HCL [Concomitant]
     Route: 048
  3. CRESTOR [Suspect]
     Indication: HYPERLIPIDAEMIA
     Route: 048

REACTIONS (1)
  - VASCULITIS [None]
